FAERS Safety Report 8796269 (Version 3)
Quarter: 2012Q4

REPORT INFORMATION
  Report Type: 
  Country: US (occurrence: US)
  Receive Date: 20120919
  Receipt Date: 20121105
  Transmission Date: 20130627
  Serious: Yes (Other)
  Sender: FDA-Public Use
  Company Number: US-PFIZER INC-2012227327

PATIENT
  Age: 82 Year
  Sex: Male
  Weight: 90.7 kg

DRUGS (7)
  1. VIAGRA [Suspect]
     Indication: ERECTILE DYSFUNCTION
     Dosage: one half of 100mg tablet, as needed
     Route: 048
  2. VIAGRA [Interacting]
     Dosage: 100 mg, as needed
     Route: 048
     Dates: start: 2012, end: 201209
  3. TAMSULOSIN HYDROCHLORIDE [Interacting]
     Dosage: 0.4 mg, daily
     Dates: start: 1992
  4. ASPIRIN [Concomitant]
     Dosage: 81 mg, 1x/day
  5. SIMVASTATIN [Concomitant]
     Indication: BLOOD CHOLESTEROL ABNORMAL
     Dosage: 80 mg, daily
  6. METOPROLOL [Concomitant]
     Indication: HEART DISORDER
     Dosage: 25 mg, daily
  7. LISINOPRIL [Concomitant]
     Dosage: 5 mg, daily

REACTIONS (3)
  - Myocardial infarction [Recovered/Resolved]
  - Drug ineffective [Unknown]
  - Drug interaction [Unknown]
